FAERS Safety Report 7029173-1 (Version None)
Quarter: 2010Q4

REPORT INFORMATION
  Report Type: 
  Country: None (occurrence: None)
  Receive Date: 20101005
  Receipt Date: 20100930
  Transmission Date: 20110411
  Serious: Yes (Other)
  Sender: FDA-Public Use
  Company Number: US-RB-016067-10

PATIENT
  Age: 37 Year
  Sex: Male

DRUGS (1)
  1. SUBOXONE TABLET [Suspect]
     Indication: DRUG DEPENDENCE
     Dosage: FIRST AND SECOND DOSE WAS 4 MG, THIRD DOSE WAS 8 MG
     Route: 060
     Dates: start: 20100929, end: 20100929

REACTIONS (2)
  - ANXIETY [None]
  - SUICIDAL IDEATION [None]
